FAERS Safety Report 8610537-7 (Version None)
Quarter: 2012Q3

REPORT INFORMATION
  Report Type: 
  Country: None (occurrence: None)
  Receive Date: 20120822
  Receipt Date: 20120817
  Transmission Date: 20120928
  Serious: Yes (Other)
  Sender: FDA-Public Use
  Company Number: US-AMGEN-USASP2012052308

PATIENT
  Age: 50 Year
  Sex: Female

DRUGS (3)
  1. ENBREL [Suspect]
     Indication: RHEUMATOID ARTHRITIS
     Dosage: 50 MG, QWK
     Dates: start: 20060101
  2. METHOTREXATE [Concomitant]
     Dosage: UNK
  3. KLONOPIN [Concomitant]
     Dosage: UNK

REACTIONS (9)
  - BEDRIDDEN [None]
  - BLOOD GLUCOSE DECREASED [None]
  - THERAPEUTIC RESPONSE DECREASED [None]
  - RHEUMATOID ARTHRITIS [None]
  - JOINT CONTRACTURE [None]
  - VESSEL PUNCTURE SITE HAEMATOMA [None]
  - INSOMNIA [None]
  - UPPER LIMB FRACTURE [None]
  - ALANINE AMINOTRANSFERASE INCREASED [None]
